FAERS Safety Report 10709735 (Version 1)
Quarter: 2015Q1

REPORT INFORMATION
  Report Type: Spontaneous
  Country: US (occurrence: US)
  Receive Date: 20150114
  Receipt Date: 20150114
  Transmission Date: 20150721
  Serious: Yes (Death)
  Sender: FDA-Public Use
  Company Number: US-ASTRAZENECA-2015SE01931

PATIENT
  Age: 47 Year
  Sex: Female

DRUGS (5)
  1. QUETIAPINE [Suspect]
     Active Substance: QUETIAPINE
     Route: 048
  2. METOPROLOL [Suspect]
     Active Substance: METOPROLOL
     Route: 048
  3. DIAZEPAM. [Suspect]
     Active Substance: DIAZEPAM
     Route: 048
  4. CARISOPRODOL. [Suspect]
     Active Substance: CARISOPRODOL
     Route: 048
  5. OXYCODONE [Suspect]
     Active Substance: OXYCODONE
     Route: 048

REACTIONS (2)
  - Toxicity to various agents [Fatal]
  - Drug abuse [Fatal]
